FAERS Safety Report 7008250-5 (Version None)
Quarter: 2010Q3

REPORT INFORMATION
  Report Type: 
  Country: None (occurrence: None)
  Receive Date: 20100922
  Receipt Date: 20100916
  Transmission Date: 20110219
  Serious: Yes (Hospitalization)
  Sender: FDA-Public Use
  Company Number: A0731265A

PATIENT
  Age: 60 Year
  Sex: Male

DRUGS (1)
  1. AVANDIA [Suspect]
     Dosage: 2MG TWICE PER DAY
     Route: 048
     Dates: start: 20021003, end: 20070623

REACTIONS (4)
  - ARTERIOSCLEROSIS CORONARY ARTERY [None]
  - INJURY [None]
  - MYOCARDIAL INFARCTION [None]
  - VERTIGO [None]
